FAERS Safety Report 5573452-1 (Version None)
Quarter: 2007Q4

REPORT INFORMATION
  Report Type: 
  Country: None (occurrence: None)
  Receive Date: 20071226
  Receipt Date: 20071210
  Transmission Date: 20080405
  Serious: Yes (Hospitalization)
  Sender: FDA-Public Use
  Company Number: LT-BAYER-200717273GPV

PATIENT
  Age: 61 Year
  Sex: Male
  Weight: 83 kg

DRUGS (12)
  1. MOXIFLOXACIN I.V. VERSUS ERTAPENEM I.V. [Suspect]
     Indication: PERITONITIS
     Route: 042
     Dates: start: 20071011, end: 20071018
  2. FENTANYL [Concomitant]
     Indication: GENERAL ANAESTHESIA
     Route: 042
     Dates: start: 20071011, end: 20071011
  3. ARDUAN [Concomitant]
     Indication: GENERAL ANAESTHESIA
     Route: 042
     Dates: start: 20071011, end: 20071011
  4. THIOPENTAL SODIUM [Concomitant]
     Indication: GENERAL ANAESTHESIA
     Route: 042
     Dates: start: 20071011, end: 20071011
  5. ATROPINE SULFATE [Concomitant]
     Indication: GENERAL ANAESTHESIA
     Route: 042
     Dates: start: 20071011, end: 20071011
  6. PROSERIN [Concomitant]
     Indication: GENERAL ANAESTHESIA
     Route: 042
     Dates: start: 20071011, end: 20071011
  7. AMPICILLIN [Concomitant]
     Indication: INFECTION PROPHYLAXIS
     Route: 042
     Dates: start: 20071011, end: 20071011
  8. GENTAMICIN [Concomitant]
     Indication: ABDOMINAL INFECTION
     Route: 042
     Dates: start: 20071011, end: 20071011
  9. RINGER'S [Concomitant]
     Indication: DETOXIFICATION
     Route: 042
     Dates: start: 20071011, end: 20071014
  10. SODIUM CHLORIDE [Concomitant]
     Indication: DETOXIFICATION
     Route: 042
     Dates: start: 20071011, end: 20071014
  11. POTASSIUM CHLORIDE [Concomitant]
     Indication: ELECTROLYTE IMBALANCE
     Dosage: UNIT DOSE: 10 %
     Route: 042
     Dates: start: 20071011, end: 20071011
  12. DOLSIN [Concomitant]
     Indication: PAIN
     Route: 030
     Dates: start: 20071011, end: 20071011

REACTIONS (2)
  - HAEMATOMA INFECTION [None]
  - PERITONEAL ABSCESS [None]
